FAERS Safety Report 12756371 (Version 2)
Quarter: 2016Q4

REPORT INFORMATION
  Report Type: Spontaneous
  Country: SI (occurrence: SI)
  Receive Date: 20160916
  Receipt Date: 20161111
  Transmission Date: 20170207
  Serious: Yes (Life-Threatening, Hospitalization, Other)
  Sender: FDA-Public Use
  Company Number: SI-009507513-1609SVN001505

PATIENT
  Age: 30 Year
  Sex: Female

DRUGS (1)
  1. NUVARING [Suspect]
     Active Substance: ETHINYL ESTRADIOL\ETONOGESTREL
     Indication: CONTRACEPTION
     Dosage: FREQUENCY: CONTINUOUSLY FOR 3 WEEKS WITH RING
     Route: 067
     Dates: start: 20160523, end: 20160810

REACTIONS (8)
  - Pulmonary embolism [Unknown]
  - Right ventricular enlargement [Unknown]
  - Anxiety [Unknown]
  - Pulmonary embolism [Recovered/Resolved with Sequelae]
  - Emotional distress [Unknown]
  - Ventricular hypokinesia [Unknown]
  - Deep vein thrombosis [Unknown]
  - Pulmonary infarction [Unknown]

NARRATIVE: CASE EVENT DATE: 201608
